FAERS Safety Report 7961990-3 (Version None)
Quarter: 2011Q4

REPORT INFORMATION
  Report Type: 
  Country: None (occurrence: None)
  Receive Date: 20111205
  Receipt Date: 20111205
  Transmission Date: 20120403
  Serious: Yes (Hospitalization)
  Sender: FDA-Public Use
  Company Number: None

PATIENT
  Age: 49 Year
  Sex: Female
  Weight: 116.8 kg

DRUGS (1)
  1. IRON SUCROSE [Suspect]
     Indication: ANAEMIA
     Dosage: 400 MG OTHER IV
     Route: 042
     Dates: start: 20100624, end: 20100624

REACTIONS (2)
  - HYPOTENSION [None]
  - RASH [None]
